FAERS Safety Report 11483888 (Version 1)
Quarter: 2015Q3

REPORT INFORMATION
  Report Type: Spontaneous
  Country: US (occurrence: US)
  Receive Date: 20150909
  Receipt Date: 20150909
  Transmission Date: 20151125
  Serious: No
  Sender: FDA-Public Use
  Company Number: US-JAZZ-2014-US-017249

PATIENT
  Sex: Female

DRUGS (1)
  1. XYREM [Suspect]
     Active Substance: SODIUM OXYBATE
     Indication: PRODUCT USED FOR UNKNOWN INDICATION
     Dosage: 2.25 G, BID
     Route: 048
     Dates: start: 201412

REACTIONS (8)
  - Dehydration [Unknown]
  - Nausea [Unknown]
  - Product use issue [Unknown]
  - Vomiting [Unknown]
  - Anxiety [Unknown]
  - Crying [Unknown]
  - Dizziness [Unknown]
  - Unevaluable event [Unknown]
